FAERS Safety Report 5856956-3 (Version None)
Quarter: 2008Q3

REPORT INFORMATION
  Report Type: 
  Country: None (occurrence: None)
  Receive Date: 20080818
  Receipt Date: 20080616
  Transmission Date: 20090109
  Serious: No
  Sender: FDA-Public Use
  Company Number: WAES 0806USA03370

PATIENT
  Age: 55 Year
  Sex: Female

DRUGS (1)
  1. JANUVIA [Suspect]
     Indication: GLUCOSE TOLERANCE IMPAIRED
     Dosage: PO
     Route: 048
     Dates: start: 20080602, end: 20080612

REACTIONS (1)
  - DIARRHOEA [None]
